FAERS Safety Report 8545893-1 (Version None)
Quarter: 2012Q3

REPORT INFORMATION
  Report Type: 
  Country: None (occurrence: None)
  Receive Date: 20120727
  Receipt Date: 20111116
  Transmission Date: 20120928
  Serious: No
  Sender: FDA-Public Use
  Company Number: US-ASTRAZENECA-2011SE70244

PATIENT
  Age: 70 Year
  Sex: Female

DRUGS (1)
  1. SEROQUEL [Suspect]
     Indication: DEPRESSION
     Dosage: 50 MG, ONE TABLET IN THE MORNING AND TWO TABLETS AT NIGHT
     Route: 048

REACTIONS (2)
  - LARYNGITIS [None]
  - MALAISE [None]
